FAERS Safety Report 4974580-1 (Version None)
Quarter: 2006Q2

REPORT INFORMATION
  Report Type: 
  Country: None (occurrence: None)
  Receive Date: 20060410
  Receipt Date: 20060328
  Transmission Date: 20061013
  Serious: Yes (Other)
  Sender: FDA-Public Use
  Company Number: 2006044023

PATIENT
  Sex: Male

DRUGS (1)
  1. VIAGRA [Suspect]
     Indication: ERECTILE DYSFUNCTION
     Dosage: 100 MG (100 MG, ONCE INTERVAL: DAY), ORAL
     Route: 048
     Dates: start: 20050101, end: 20050101

REACTIONS (1)
  - RETINAL ARTERY OCCLUSION [None]
